FAERS Safety Report 4648573-8 (Version None)
Quarter: 2005Q2

REPORT INFORMATION
  Report Type: 
  Country: None (occurrence: None)
  Receive Date: 20050429
  Receipt Date: 20050209
  Transmission Date: 20051028
  Serious: Yes (Death)
  Sender: FDA-Public Use
  Company Number: US-AMGEN-US113267

PATIENT
  Sex: Female
  Weight: 58.1 kg

DRUGS (1)
  1. PROCRIT [Suspect]
     Indication: HIV INFECTION
     Route: 058

REACTIONS (1)
  - MYOCARDIAL INFARCTION [None]
